FAERS Safety Report 5771966-2 (Version None)
Quarter: 2008Q2

REPORT INFORMATION
  Report Type: 
  Country: None (occurrence: None)
  Receive Date: 20080613
  Receipt Date: 20080605
  Transmission Date: 20081010
  Serious: Yes (Life-Threatening, Other)
  Sender: FDA-Public Use
  Company Number: JP-BAYER-200810978BYL

PATIENT
  Age: 70 Year
  Sex: Male
  Weight: 76 kg

DRUGS (9)
  1. ASPIRIN [Suspect]
     Indication: PLATELET AGGREGATION INHIBITION
     Dosage: TOTAL DAILY DOSE: 100 MG  UNIT DOSE: 100 MG
     Route: 048
     Dates: start: 20061208, end: 20080517
  2. ADALAT [Concomitant]
     Indication: HYPERTENSION
     Dosage: TOTAL DAILY DOSE: 20 MG  UNIT DOSE: 20 MG
     Route: 048
  3. PREMINENT [Concomitant]
     Indication: HYPERTENSION
     Route: 048
  4. GLIMICRON [Concomitant]
     Indication: DIABETES MELLITUS
     Route: 048
  5. ROHYPNOL [Concomitant]
     Route: 065
  6. AMOBAN [Concomitant]
     Route: 048
  7. DESYREL [Concomitant]
     Indication: INSOMNIA
     Route: 048
  8. KETOPROFEN [Concomitant]
     Route: 062
  9. RINDERON-VG [Concomitant]
     Route: 061

REACTIONS (10)
  - BLOOD PRESSURE DECREASED [None]
  - CAROTID ARTERY OCCLUSION [None]
  - CEREBRAL INFARCTION [None]
  - HAEMATOCHEZIA [None]
  - LOSS OF CONSCIOUSNESS [None]
  - LOWER GASTROINTESTINAL HAEMORRHAGE [None]
  - OEDEMA PERIPHERAL [None]
  - RESPIRATORY ARREST [None]
  - SHOCK HAEMORRHAGIC [None]
  - VENOUS THROMBOSIS LIMB [None]
